FAERS Safety Report 6915372-3 (Version None)
Quarter: 2010Q3

REPORT INFORMATION
  Report Type: 
  Country: None (occurrence: None)
  Receive Date: 20100809
  Receipt Date: 20100309
  Transmission Date: 20110219
  Serious: Yes (Other)
  Sender: FDA-Public Use
  Company Number: US-ABBOTT-10P-163-0630965-00

PATIENT
  Sex: Male
  Weight: 90.8 kg

DRUGS (1)
  1. DEPAKOTE ER [Suspect]
     Indication: CONVULSION
     Route: 048
     Dates: start: 20100201

REACTIONS (1)
  - CONVULSION [None]
